FAERS Safety Report 7036749-4 (Version None)
Quarter: 2010Q4

REPORT INFORMATION
  Report Type: 
  Country: None (occurrence: None)
  Receive Date: 20101011
  Receipt Date: 20100928
  Transmission Date: 20110411
  Serious: No
  Sender: FDA-Public Use
  Company Number: 2009BI036401

PATIENT
  Sex: Female

DRUGS (1)
  1. TYSABRI [Suspect]
     Indication: MULTIPLE SCLEROSIS
     Route: 042
     Dates: start: 20081014

REACTIONS (10)
  - ARTHROPATHY [None]
  - ASTHENIA [None]
  - CHILLS [None]
  - CONTUSION [None]
  - FATIGUE [None]
  - FEELING COLD [None]
  - GAIT DISTURBANCE [None]
  - PYREXIA [None]
  - SKIN ATROPHY [None]
  - TENDONITIS [None]
